FAERS Safety Report 14471447 (Version 1)
Quarter: 2018Q1

REPORT INFORMATION
  Report Type: Spontaneous
  Country: GB (occurrence: GB)
  Receive Date: 20180131
  Receipt Date: 20180131
  Transmission Date: 20180509
  Serious: Yes (Other)
  Sender: FDA-Public Use
  Company Number: GB-PFIZER INC-2018037686

PATIENT
  Age: 52 Year
  Sex: Female
  Weight: 91 kg

DRUGS (8)
  1. ASPIRINE [Concomitant]
     Active Substance: ASPIRIN
  2. TICAGRELOR. [Concomitant]
     Active Substance: TICAGRELOR
  3. SYMBICORT [Concomitant]
     Active Substance: BUDESONIDE\FORMOTEROL FUMARATE DIHYDRATE
  4. RAMIPRIL. [Concomitant]
     Active Substance: RAMIPRIL
  5. SALBUTAMOL [Concomitant]
     Active Substance: ALBUTEROL
  6. ATORVASTATIN CALCIUM. [Suspect]
     Active Substance: ATORVASTATIN CALCIUM
     Indication: ISCHAEMIC HEART DISEASE PROPHYLAXIS
     Dosage: 80 MG
     Route: 048
     Dates: start: 20171127
  7. OMEPRAZOLE. [Concomitant]
     Active Substance: OMEPRAZOLE
  8. BISOPROLOL [Concomitant]
     Active Substance: BISOPROLOL

REACTIONS (3)
  - Hepatitis acute [Recovering/Resolving]
  - Pruritus [Unknown]
  - Nausea [Unknown]

NARRATIVE: CASE EVENT DATE: 20171127
